FAERS Safety Report 13090323 (Version 1)
Quarter: 2017Q1

REPORT INFORMATION
  Report Type: Spontaneous
  Country: US (occurrence: US)
  Receive Date: 20170105
  Receipt Date: 20170105
  Transmission Date: 20170428
  Serious: Yes (Hospitalization)
  Sender: FDA-Public Use
  Company Number: US-ENDO PHARMACEUTICALS INC.-2016-005493

PATIENT
  Age: 77 Year
  Sex: Male
  Weight: 98.52 kg

DRUGS (6)
  1. SYNTHROID [Concomitant]
     Active Substance: LEVOTHYROXINE SODIUM
     Indication: HYPOTHYROIDISM
     Route: 065
     Dates: start: 20090918
  2. CRESTOR [Concomitant]
     Active Substance: ROSUVASTATIN CALCIUM
     Indication: BLOOD CHOLESTEROL INCREASED
     Route: 065
     Dates: start: 20081110
  3. ALLOPURINOL TABLETS [Concomitant]
     Active Substance: ALLOPURINOL
     Indication: GOUT
     Route: 065
     Dates: start: 20060106
  4. METOPROLOL. [Concomitant]
     Active Substance: METOPROLOL
     Indication: HYPERTENSION
     Route: 065
     Dates: start: 20070820
  5. FORTESTA [Suspect]
     Active Substance: TESTOSTERONE
     Indication: ANDROGEN REPLACEMENT THERAPY
     Route: 061
     Dates: start: 20060126, end: 20130901
  6. POTASSIUM [Concomitant]
     Active Substance: POTASSIUM
     Indication: VITAMIN SUPPLEMENTATION
     Route: 065
     Dates: start: 20090925

REACTIONS (1)
  - Deep vein thrombosis [Recovering/Resolving]

NARRATIVE: CASE EVENT DATE: 20130913
